FAERS Safety Report 9227413 (Version 1)
Quarter: 2013Q1

REPORT INFORMATION
  Report Type: Spontaneous
  Country: US (occurrence: None)
  Receive Date: 20121012
  Receipt Date: 20121012
  Transmission Date: 20140127
  Serious: Yes (Other)
  Sender: FDA-Public Use
  Company Number: 1000028448

PATIENT
  Age: 84 Year
  Sex: Female

DRUGS (2)
  1. LEXAPRO [Suspect]
     Indication: DEPRESSION
     Dosage: (5 MG, 1 IN 1 D)
     Route: 048
     Dates: start: 20120213, end: 20120214
  2. VITAMIN B 12 [Concomitant]

REACTIONS (6)
  - Suicidal ideation [None]
  - Diarrhoea [None]
  - Insomnia [None]
  - Neck pain [None]
  - Crying [None]
  - Feeling abnormal [None]
